FAERS Safety Report 9265056 (Version 2)
Quarter: 2013Q2

REPORT INFORMATION
  Report Type: Spontaneous
  Country: US (occurrence: None)
  Receive Date: 20130425
  Receipt Date: 20130612
  Transmission Date: 20140414
  Serious: Yes (Other)
  Sender: FDA-Public Use
  Company Number: 1304-526

PATIENT
  Age: 87 Year
  Sex: Female
  Weight: 72.58 kg

DRUGS (4)
  1. EYLEA (AFLIBERCEPT) (INJECTION) (AFLIBERCEPT) [Suspect]
     Indication: MACULAR DEGENERATION
     Dosage: INTRAVITREAL
  2. CLONIDINE  (CLONIDINE) [Concomitant]
  3. RANITIDINE (RANITIDINE) [Concomitant]
  4. ALPRAZOLAM (ALPRAZOLAM) [Concomitant]

REACTIONS (9)
  - Rhinorrhoea [None]
  - Blood pressure increased [None]
  - Swelling face [None]
  - Eye pain [None]
  - Pain in jaw [None]
  - Facial pain [None]
  - Insomnia [None]
  - Rhinorrhoea [None]
  - Vision blurred [None]
